FAERS Safety Report 5760465-X (Version None)
Quarter: 2008Q2

REPORT INFORMATION
  Report Type: 
  Country: None (occurrence: None)
  Receive Date: 20080602
  Receipt Date: 20080501
  Transmission Date: 20081010
  Serious: Yes (Hospitalization)
  Sender: FDA-Public Use
  Company Number: A-NJ2008-20454

PATIENT
  Age: 43 Year
  Sex: Male

DRUGS (1)
  1. TRACLEER [Suspect]
     Indication: PULMONARY HYPERTENSION
     Dosage: ORAL
     Route: 048

REACTIONS (7)
  - ATRIAL FIBRILLATION [None]
  - DISEASE PROGRESSION [None]
  - HYPOTENSION [None]
  - ISCHAEMIC HEPATITIS [None]
  - OFF LABEL USE [None]
  - PULMONARY HYPERTENSION [None]
  - RIGHT VENTRICULAR FAILURE [None]
